FAERS Safety Report 6386745-5 (Version None)
Quarter: 2009Q4

REPORT INFORMATION
  Report Type: 
  Country: None (occurrence: None)
  Receive Date: 20091002
  Receipt Date: 20090928
  Transmission Date: 20100525
  Serious: Yes (Other)
  Sender: FDA-Public Use
  Company Number: A0803076A

PATIENT
  Age: 48 Year
  Sex: Female
  Weight: 60.5 kg

DRUGS (2)
  1. TYKERB [Suspect]
     Dosage: 4TAB PER DAY
     Route: 048
     Dates: start: 20090806
  2. XELODA [Suspect]
     Dosage: 1500MG TWICE PER DAY
     Route: 048
     Dates: start: 20090823

REACTIONS (6)
  - DIARRHOEA [None]
  - FATIGUE [None]
  - HEAD DISCOMFORT [None]
  - HEADACHE [None]
  - SOMNOLENCE [None]
  - THROMBOCYTOPENIA [None]
